FAERS Safety Report 18098429 (Version 1)
Quarter: 2020Q3

REPORT INFORMATION
  Report Type: Spontaneous
  Country: US (occurrence: US)
  Receive Date: 20200731
  Receipt Date: 20200731
  Transmission Date: 20201103
  Serious: No
  Sender: FDA-Public Use
  Company Number: US-PFIZER INC-2020290797

PATIENT
  Age: 29 Year
  Sex: Male
  Weight: 86.18 kg

DRUGS (1)
  1. VIAGRA [Suspect]
     Active Substance: SILDENAFIL CITRATE
     Indication: PENIS DISORDER
     Dosage: 100 MG (100MG BLUE PILL)
     Dates: start: 20200730

REACTIONS (2)
  - Therapeutic product effect incomplete [Unknown]
  - Intentional overdose [Unknown]

NARRATIVE: CASE EVENT DATE: 20200730
